FAERS Safety Report 4697264-6 (Version None)
Quarter: 2005Q2

REPORT INFORMATION
  Report Type: 
  Country: None (occurrence: None)
  Receive Date: 20050620
  Receipt Date: 20050602
  Transmission Date: 20051028
  Serious: Yes (Life-Threatening)
  Sender: FDA-Public Use
  Company Number: DSA_26369_2005

PATIENT
  Age: 82 Year
  Sex: Male

DRUGS (3)
  1. TEVETEN [Suspect]
     Indication: HYPERTENSION
     Dosage: 600 MG Q DAY PO
     Route: 048
     Dates: start: 20040429
  2. ASCAL [Concomitant]
  3. HOEMOPATHIC [Concomitant]

REACTIONS (4)
  - ANAEMIA [None]
  - FALL [None]
  - LARGE CELL CARCINOMA OF THE RESPIRATORY TRACT STAGE UNSPECIFIED [None]
  - VENTRICULAR HYPERTROPHY [None]
